FAERS Safety Report 10399441 (Version 1)
Quarter: 2014Q3

REPORT INFORMATION
  Report Type: Spontaneous
  Country: IT (occurrence: None)
  Receive Date: 20140819
  Receipt Date: 20140819
  Transmission Date: 20150326
  Serious: Yes (Other)
  Sender: FDA-Public Use
  Company Number: AUR-APL-2014-08623

PATIENT
  Age: 63 Year
  Sex: Male

DRUGS (1)
  1. AMOXICLLIN+CLAVULANIC ACID (CLAVULANIC ACID, AMOXICILLIN) [Suspect]
     Active Substance: AMOXICILLIN\CLAVULANIC ACID
     Indication: PRODUCT USED FOR UNKNOWN INDICATION
     Dosage: TOTAL
     Route: 048
     Dates: start: 20140629, end: 20140630

REACTIONS (2)
  - Urticaria [None]
  - Sensation of foreign body [None]

NARRATIVE: CASE EVENT DATE: 20140630
